FAERS Safety Report 8014752-5 (Version None)
Quarter: 2011Q4

REPORT INFORMATION
  Report Type: 
  Country: None (occurrence: None)
  Receive Date: 20111229
  Receipt Date: 20111222
  Transmission Date: 20120403
  Serious: Yes (Life-Threatening, Hospitalization)
  Sender: FDA-Public Use
  Company Number: US-GILEAD-2011-0048616

PATIENT
  Age: 50 Year
  Sex: Female

DRUGS (5)
  1. LETAIRIS [Suspect]
     Indication: CHRONIC RESPIRATORY DISEASE
  2. LETAIRIS [Suspect]
     Indication: INTERSTITIAL LUNG DISEASE
  3. LETAIRIS [Suspect]
     Indication: SLEEP APNOEA SYNDROME
  4. LETAIRIS [Suspect]
     Indication: CARDIAC FAILURE CONGESTIVE
  5. LETAIRIS [Suspect]
     Indication: PULMONARY HYPERTENSION
     Dosage: 10 MG, UNK
     Dates: start: 20110930

REACTIONS (5)
  - PULMONARY ARTERIAL HYPERTENSION [None]
  - TRANSFUSION [None]
  - DYSPNOEA [None]
  - SYNCOPE [None]
  - PNEUMONIA [None]
